FAERS Safety Report 7735018-4 (Version None)
Quarter: 2011Q3

REPORT INFORMATION
  Report Type: 
  Country: None (occurrence: None)
  Receive Date: 20110907
  Receipt Date: 20110831
  Transmission Date: 20111222
  Serious: Yes (Other)
  Sender: FDA-Public Use
  Company Number: JP-PFIZER INC-2011152094

PATIENT
  Age: 80 Year
  Sex: Male
  Weight: 47 kg

DRUGS (1)
  1. LYRICA [Suspect]
     Indication: NEURALGIA
     Dosage: 75 MG, 2X/DAY
     Route: 048
     Dates: start: 20110401, end: 20110603

REACTIONS (5)
  - DIZZINESS [None]
  - PERSONALITY CHANGE [None]
  - FALL [None]
  - FACE INJURY [None]
  - CONSTIPATION [None]
